FAERS Safety Report 8023092-X (Version None)
Quarter: 2012Q1

REPORT INFORMATION
  Report Type: 
  Country: None (occurrence: None)
  Receive Date: 20120104
  Receipt Date: 20111230
  Transmission Date: 20120608
  Serious: Yes (Hospitalization)
  Sender: FDA-Public Use
  Company Number: PHEH2011US012869

PATIENT
  Sex: Female

DRUGS (2)
  1. AFINITOR [Suspect]
     Dosage: 10 MG, QD
     Route: 048
  2. SANDOSTATIN LAR [Concomitant]
     Dosage: 20 MG, UNK

REACTIONS (1)
  - SKIN ULCER [None]
